FAERS Safety Report 23222363 (Version 1)
Quarter: 2023Q4

REPORT INFORMATION
  Report Type: Spontaneous
  Country: US (occurrence: US)
  Receive Date: 20231123
  Receipt Date: 20231123
  Transmission Date: 20240110
  Serious: Yes (Other)
  Sender: FDA-Public Use
  Company Number: US-BRISTOL-MYERS SQUIBB COMPANY-2023-164199

PATIENT
  Age: 94 Year
  Sex: Female

DRUGS (1)
  1. ONUREG [Suspect]
     Active Substance: AZACITIDINE
     Indication: Product used for unknown indication
     Dosage: FREQ: ONCE DAILY ON DAYS1-14 OF A 35 DAY CYCLE.
     Route: 048

REACTIONS (2)
  - Hip fracture [Unknown]
  - Off label use [Unknown]

NARRATIVE: CASE EVENT DATE: 20231110
